FAERS Safety Report 10283948 (Version 1)
Quarter: 2014Q3

REPORT INFORMATION
  Report Type: Report from Study
  Country: CN (occurrence: None)
  Receive Date: 20140703
  Receipt Date: 20140703
  Transmission Date: 20150326
  Serious: Yes (Other)
  Sender: FDA-Public Use
  Company Number: 7301715

PATIENT
  Age: 25 Year
  Sex: Female

DRUGS (1)
  1. EUTHYROX 50 MCG (LEVOTHYROXINE SODIUM) (TABLET) (LEVOTHYROXINE SODIUM) [Suspect]
     Active Substance: LEVOTHYROXINE SODIUM
     Indication: HYPOTHYROIDISM
     Dosage: 0.5 DF (0.5 DF, 1 IN 1 D)
     Route: 048
     Dates: start: 201112, end: 201306

REACTIONS (2)
  - Maternal exposure during pregnancy [None]
  - Hyperthyroidism [None]

NARRATIVE: CASE EVENT DATE: 20140520
